FAERS Safety Report 20740648 (Version 5)
Quarter: 2022Q4

REPORT INFORMATION
  Report Type: Report from Study
  Country: US (occurrence: US)
  Receive Date: 20220422
  Receipt Date: 20221017
  Transmission Date: 20230112
  Serious: Yes (Other)
  Sender: FDA-Public Use
  Company Number: US-BIOVITRUM-2022US04916

PATIENT
  Sex: Male

DRUGS (1)
  1. KINERET [Suspect]
     Active Substance: ANAKINRA
     Indication: Product used for unknown indication

REACTIONS (11)
  - Rheumatoid arthritis [Unknown]
  - Dizziness [Unknown]
  - Taste disorder [Unknown]
  - Joint swelling [Unknown]
  - Exostosis [Unknown]
  - Aphthous ulcer [Unknown]
  - Finger deformity [Unknown]
  - Eye infection [Unknown]
  - Thyroid disorder [Unknown]
  - Product dose omission issue [Unknown]
  - Incorrect route of product administration [Unknown]
